FAERS Safety Report 5873113-5 (Version None)
Quarter: 2008Q3

REPORT INFORMATION
  Report Type: 
  Country: None (occurrence: None)
  Receive Date: 20080905
  Receipt Date: 20080905
  Transmission Date: 20090109
  Serious: No
  Sender: FDA-Public Use
  Company Number: None

PATIENT

DRUGS (1)
  1. VYTORIN [Suspect]
     Dosage: TOOK FOR ONLY 4 MONTHS

REACTIONS (12)
  - BALANCE DISORDER [None]
  - BLOOD CHOLESTEROL DECREASED [None]
  - DISTURBANCE IN ATTENTION [None]
  - DIZZINESS [None]
  - DYSPHAGIA [None]
  - DYSPNOEA [None]
  - FIBROMYALGIA [None]
  - MEMORY IMPAIRMENT [None]
  - MUSCLE SPASMS [None]
  - NEUROPATHY PERIPHERAL [None]
  - POLYMYOSITIS [None]
  - SLEEP APNOEA SYNDROME [None]
